FAERS Safety Report 6454411-3 (Version None)
Quarter: 2009Q4

REPORT INFORMATION
  Report Type: 
  Country: None (occurrence: None)
  Receive Date: 20091124
  Receipt Date: 20091111
  Transmission Date: 20100525
  Serious: Yes (Hospitalization)
  Sender: FDA-Public Use
  Company Number: PHHY2009MX49895

PATIENT
  Age: 80 Year
  Sex: Female

DRUGS (1)
  1. DIOVAN HCT [Suspect]
     Indication: HYPERTENSION
     Dosage: 1 TABLET (160/25 MG) PER DAY
     Dates: start: 19990101, end: 20091021

REACTIONS (4)
  - GASTRIC OPERATION [None]
  - GASTRIC ULCER [None]
  - GASTRIC ULCER HAEMORRHAGE [None]
  - GASTRIC ULCER PERFORATION [None]
